FAERS Safety Report 8509571-7 (Version None)
Quarter: 2012Q3

REPORT INFORMATION
  Report Type: 
  Country: None (occurrence: None)
  Receive Date: 20120713
  Receipt Date: 20120705
  Transmission Date: 20120928
  Serious: Yes (Other)
  Sender: FDA-Public Use
  Company Number: FR-UCBSA-061130

PATIENT
  Age: 74 Year
  Sex: Female

DRUGS (2)
  1. NEUPRO [Suspect]
     Indication: PARKINSON'S DISEASE
     Dosage: 4MG/24H + 2MG/24H
     Route: 062
     Dates: end: 20120101
  2. SINEMET [Concomitant]
     Dosage: 0.5 UNIT X 3
     Route: 048

REACTIONS (3)
  - APPLICATION SITE VESICLES [None]
  - APPLICATION SITE REACTION [None]
  - APPLICATION SITE PRURITUS [None]
